FAERS Safety Report 24731110 (Version 1)
Quarter: 2024Q4

REPORT INFORMATION
  Report Type: Spontaneous
  Country: US (occurrence: None)
  Receive Date: 20241212
  Receipt Date: 20241212
  Transmission Date: 20250114
  Serious: Yes (Other)
  Sender: Public
  Company Number: None

PATIENT
  Age: 69 Year
  Sex: Female
  Weight: 68.4 kg

DRUGS (1)
  1. HIZENTRA [Suspect]
     Active Substance: HUMAN IMMUNOGLOBULIN G
     Indication: Immunodeficiency common variable
     Dosage: 8 G GRAM(S) ONCE  A WEEK SUBCUTANEOUS
     Route: 058
     Dates: start: 20211108

REACTIONS (3)
  - Headache [None]
  - Infusion related reaction [None]
  - Drug ineffective [None]

NARRATIVE: CASE EVENT DATE: 20241129
